FAERS Safety Report 19962670 (Version 3)
Quarter: 2022Q2

REPORT INFORMATION
  Report Type: Report from Study
  Country: GB (occurrence: GB)
  Receive Date: 20211018
  Receipt Date: 20220411
  Transmission Date: 20220720
  Serious: Yes (Other)
  Sender: FDA-Public Use
  Company Number: GB-NOVARTISPH-NVSC2021GB143422

PATIENT
  Age: 68 Year
  Sex: Female

DRUGS (5)
  1. KISQALI [Suspect]
     Active Substance: RIBOCICLIB
     Indication: Breast cancer
     Dosage: 400 MG, Q3W (ONCE DAILY FOR 3 WEEKS ON, ONE WEEK OFF THEN RESUME FOR 3 WEEKS, REPEATED)
     Route: 048
     Dates: start: 20210423
  2. KISQALI [Suspect]
     Active Substance: RIBOCICLIB
     Dosage: 600 MG, QD (200 MG, TID)
     Route: 048
     Dates: start: 20210423
  3. KISQALI [Suspect]
     Active Substance: RIBOCICLIB
     Dosage: 400 MG, QD (200 MG BID)
     Route: 048
     Dates: start: 20210423
  4. KISQALI [Suspect]
     Active Substance: RIBOCICLIB
     Dosage: 400 MG, QD
     Route: 048
  5. PROPRANOLOL [Suspect]
     Active Substance: PROPRANOLOL HYDROCHLORIDE
     Indication: Anxiety
     Dosage: 2 DF, BID
     Route: 065

REACTIONS (7)
  - Bradycardia [Unknown]
  - Thrombocytopenia [Unknown]
  - Anxiety [Unknown]
  - Blood calcium decreased [Unknown]
  - Neutrophil count decreased [Unknown]
  - Nausea [Unknown]
  - Platelet count decreased [Unknown]

NARRATIVE: CASE EVENT DATE: 20210801
